FAERS Safety Report 17464007 (Version 1)
Quarter: 2020Q1

REPORT INFORMATION
  Report Type: Spontaneous
  Country: US (occurrence: US)
  Receive Date: 20200226
  Receipt Date: 20200226
  Transmission Date: 20200409
  Serious: No
  Sender: FDA-Public Use
  Company Number: US-MYLANLABS-2020M1017327

PATIENT
  Sex: Female
  Weight: 71 kg

DRUGS (1)
  1. ALMOTRIPTAN MALATE TABLETS [Suspect]
     Active Substance: ALMOTRIPTAN MALATE
     Indication: MIGRAINE
     Dosage: 10 TABLETS/5 DAY
     Route: 048

REACTIONS (1)
  - Drug ineffective [Unknown]
